FAERS Safety Report 23324100 (Version 2)
Quarter: 2023Q4

REPORT INFORMATION
  Report Type: Spontaneous
  Country: US (occurrence: US)
  Receive Date: 20231221
  Receipt Date: 20231228
  Transmission Date: 20240110
  Serious: Yes (Other)
  Sender: FDA-Public Use
  Company Number: US-MLMSERVICE-20231201-4703760-2

PATIENT

DRUGS (9)
  1. HYDROXYCHLOROQUINE [Suspect]
     Active Substance: HYDROXYCHLOROQUINE
     Indication: Dermatomyositis
     Dosage: 400 MG, QD
  2. CETIRIZINE [Concomitant]
     Active Substance: CETIRIZINE HYDROCHLORIDE
     Dosage: UNK
  3. AMLODIPINE [Concomitant]
     Active Substance: AMLODIPINE BESYLATE
     Dosage: UNK
  4. SULFAMETHOXAZOLE\TRIMETHOPRIM [Concomitant]
     Active Substance: SULFAMETHOXAZOLE\TRIMETHOPRIM
     Dosage: UNK
  5. ASPIRIN [Concomitant]
     Active Substance: ASPIRIN
     Dosage: UNK
  6. GLIPIZIDE [Concomitant]
     Active Substance: GLIPIZIDE
     Dosage: UNK
  7. PREDNISONE [Concomitant]
     Active Substance: PREDNISONE
     Indication: Dermatomyositis
     Dosage: HIGH-DOSE
  8. METHOTREXATE [Concomitant]
     Active Substance: METHOTREXATE
     Indication: Dermatomyositis
     Dosage: 20 MG, QW
  9. ATORVASTATIN [Concomitant]
     Active Substance: ATORVASTATIN
     Dosage: UNK

REACTIONS (5)
  - Dermatomyositis [Recovering/Resolving]
  - Condition aggravated [Recovering/Resolving]
  - Flagellate dermatitis [Recovering/Resolving]
  - Rash [Recovering/Resolving]
  - Erythema [Recovering/Resolving]
